FAERS Safety Report 7819364-1 (Version None)
Quarter: 2011Q4

REPORT INFORMATION
  Report Type: 
  Country: None (occurrence: None)
  Receive Date: 20111018
  Receipt Date: 20100820
  Transmission Date: 20120403
  Serious: No
  Sender: FDA-Public Use
  Company Number: US-ASTRAZENECA-2010SE39281

PATIENT
  Age: 23417 Day
  Sex: Male
  Weight: 65.8 kg

DRUGS (10)
  1. NARCOV [Concomitant]
  2. HYDROCHLOROTHIAZIDE [Concomitant]
  3. SPIRIVA [Concomitant]
  4. PRAVASTATIN [Concomitant]
  5. AMLODIPINE [Concomitant]
  6. LORAZEPAM [Concomitant]
  7. LUNESTA [Concomitant]
  8. SYMBICORT [Suspect]
     Dosage: 160/4.5 TWO PUFFS TWO TIMES A DAY
     Route: 055
  9. PROAIR HFA [Concomitant]
  10. KLOR-CON NAQ [Concomitant]

REACTIONS (2)
  - CHEST DISCOMFORT [None]
  - DRUG INEFFECTIVE [None]
